FAERS Safety Report 4641697-0 (Version None)
Quarter: 2005Q2

REPORT INFORMATION
  Report Type: 
  Country: None (occurrence: None)
  Receive Date: 20050420
  Receipt Date: 20050412
  Transmission Date: 20051028
  Serious: Yes (Death, Other)
  Sender: FDA-Public Use
  Company Number: USA-2004-0018134

PATIENT
  Age: 26 Year
  Sex: Male

DRUGS (2)
  1. OXYCONTIN [Suspect]
  2. PERCOCET [Suspect]

REACTIONS (4)
  - CHOKING [None]
  - COMA [None]
  - CYANOSIS [None]
  - POLYSUBSTANCE ABUSE [None]
